FAERS Safety Report 11683218 (Version 1)
Quarter: 2015Q4

REPORT INFORMATION
  Report Type: Spontaneous
  Country: US (occurrence: US)
  Receive Date: 20151029
  Receipt Date: 20151029
  Transmission Date: 20160304
  Serious: No
  Sender: FDA-Public Use
  Company Number: US-DSJP-DSU-2014-131949

PATIENT

DRUGS (1)
  1. AZOR [Suspect]
     Active Substance: AMLODIPINE BESYLATE\OLMESARTAN MEDOXOMIL
     Indication: PRODUCT USED FOR UNKNOWN INDICATION
     Dosage: UNK

REACTIONS (6)
  - Asthma [Unknown]
  - Rhinitis allergic [Unknown]
  - Speech disorder developmental [Unknown]
  - Attention deficit/hyperactivity disorder [Unknown]
  - Foetal exposure during pregnancy [Unknown]
  - Hand dermatitis [Unknown]
